FAERS Safety Report 5811975-8 (Version None)
Quarter: 2008Q3

REPORT INFORMATION
  Report Type: 
  Country: None (occurrence: None)
  Receive Date: 20080714
  Receipt Date: 20080626
  Transmission Date: 20090109
  Serious: No
  Sender: FDA-Public Use
  Company Number: 2008S1011142

PATIENT
  Age: 70 Year
  Sex: Female

DRUGS (7)
  1. ATENOLOL [Suspect]
     Indication: HYPERTENSION
     Dosage: 50 MG;
  2. LACTIC ACID (LACTIC ACID) [Suspect]
     Indication: HYPERTENSION
     Dosage: 1 DF; INTRADERMAL, 2 DF; INTRADERMAL, 2 DF; INTRADERMAL
     Route: 023
     Dates: start: 20060630, end: 20060630
  3. LACTIC ACID (LACTIC ACID) [Suspect]
     Indication: HYPERTENSION
     Dosage: 1 DF; INTRADERMAL, 2 DF; INTRADERMAL, 2 DF; INTRADERMAL
     Route: 023
     Dates: start: 20061011, end: 20061011
  4. LACTIC ACID (LACTIC ACID) [Suspect]
     Indication: HYPERTENSION
     Dosage: 1 DF; INTRADERMAL, 2 DF; INTRADERMAL, 2 DF; INTRADERMAL
     Route: 023
     Dates: start: 20070706, end: 20070706
  5. BENDROFLUAZIDE [Concomitant]
  6. ISTIN [Concomitant]
  7. PERINODOPRIL [Concomitant]

REACTIONS (5)
  - ABSCESS [None]
  - GRANULOMA SKIN [None]
  - KELOID SCAR [None]
  - SKIN NODULE [None]
  - WOUND SECRETION [None]
